FAERS Safety Report 7867958-X (Version None)
Quarter: 2011Q4

REPORT INFORMATION
  Report Type: 
  Country: None (occurrence: None)
  Receive Date: 20111028
  Receipt Date: 20111026
  Transmission Date: 20120403
  Serious: Yes (Death, Hospitalization)
  Sender: FDA-Public Use
  Company Number: JP-B.I. PHARMACEUTICALS,INC./RIDGEFIELD-2011-BP-25021NB

PATIENT
  Age: 85 Year
  Sex: Male
  Weight: 39 kg

DRUGS (1)
  1. PRADAXA [Suspect]
     Indication: CEREBROVASCULAR ACCIDENT PROPHYLAXIS
     Dosage: 220 MG
     Route: 048
     Dates: start: 20110330, end: 20110613

REACTIONS (3)
  - FALL [None]
  - DEATH [None]
  - GASTROINTESTINAL HAEMORRHAGE [None]
